FAERS Safety Report 9877224 (Version 1)
Quarter: 2014Q1

REPORT INFORMATION
  Report Type: Spontaneous
  Country: JP (occurrence: JP)
  Receive Date: 20140206
  Receipt Date: 20140206
  Transmission Date: 20141002
  Serious: Yes (Death, Hospitalization)
  Sender: FDA-Public Use
  Company Number: JP-NAPPMUNDI-GBR-2014-0016952

PATIENT
  Sex: Male

DRUGS (2)
  1. OXYCODONE HCL PR TABLET [Suspect]
     Indication: CANCER PAIN
     Dosage: 30 MG, DAILY
     Route: 048
     Dates: start: 201312
  2. OXYCODONE HCL PR TABLET [Suspect]
     Dosage: 10 MG, DAILY
     Route: 048
     Dates: start: 201312, end: 201312

REACTIONS (2)
  - Malignant neoplasm progression [Fatal]
  - Hiccups [Not Recovered/Not Resolved]
